FAERS Safety Report 23641002 (Version 2)
Quarter: 2024Q1

REPORT INFORMATION
  Report Type: Spontaneous
  Country: US (occurrence: US)
  Receive Date: 20240318
  Receipt Date: 20240321
  Transmission Date: 20240410
  Serious: Yes (Other)
  Sender: FDA-Public Use
  Company Number: US-JNJFOC-20240328301

PATIENT
  Age: 35 Year
  Sex: Female

DRUGS (11)
  1. SPRAVATO [Suspect]
     Active Substance: ESKETAMINE
     Indication: Depression
     Dosage: ^56 MG, 2 TOTAL DOSES^
     Dates: start: 20240223, end: 20240228
  2. SPRAVATO [Suspect]
     Active Substance: ESKETAMINE
     Dosage: ^84 MG, 1 TOTAL DOSE^?RECENT DOSE (84 MG) ON 15-MAR-2024
     Dates: start: 20240302, end: 20240302
  3. SYNTHROID [Concomitant]
     Active Substance: LEVOTHYROXINE SODIUM
     Dosage: DOSE: 0.112
  4. EFFEXOR [Concomitant]
     Active Substance: VENLAFAXINE HYDROCHLORIDE
     Dosage: DOSE -75
  5. JAIMIESS [Concomitant]
     Active Substance: ETHINYL ESTRADIOL\LEVONORGESTREL
  6. FERROUS SULFATE [Concomitant]
     Active Substance: FERROUS SULFATE
     Dosage: DOSE-325
  7. REXULTI [Concomitant]
     Active Substance: BREXPIPRAZOLE
  8. PRAZOSIN [Concomitant]
     Active Substance: PRAZOSIN
  9. ADDERALL [Concomitant]
     Active Substance: AMPHETAMINE ASPARTATE\AMPHETAMINE SULFATE\DEXTROAMPHETAMINE SACCHARATE\DEXTROAMPHETAMINE SULFATE
  10. NUVIGIL [Concomitant]
     Active Substance: ARMODAFINIL
  11. CANNABIS SATIVA SUBSP. INDICA TOP [Concomitant]
     Active Substance: CANNABIS SATIVA SUBSP. INDICA TOP

REACTIONS (2)
  - Narcolepsy [Not Recovered/Not Resolved]
  - Depression [Unknown]

NARRATIVE: CASE EVENT DATE: 20240301
